FAERS Safety Report 5892239-3 (Version None)
Quarter: 2008Q3

REPORT INFORMATION
  Report Type: 
  Country: None (occurrence: None)
  Receive Date: 20080919
  Receipt Date: 20080905
  Transmission Date: 20090109
  Serious: Yes (Death, Hospitalization)
  Sender: FDA-Public Use
  Company Number: A-NJ2008-21769

PATIENT
  Age: 66 Year
  Sex: Male

DRUGS (7)
  1. VENTAVIS [Suspect]
     Indication: PULMONARY ARTERIAL HYPERTENSION
     Dosage: 10 UG/1ML, 8 X DAY, RESPIRATORY
     Route: 055
     Dates: start: 20080730, end: 20080829
  2. ASPIRIN [Concomitant]
  3. REVATIO (SILDENAFEL CITRATE) [Concomitant]
  4. FUROSEMIDE [Concomitant]
  5. GLYBURIDE (GLINBENCLAMIDE) [Concomitant]
  6. CARVEDILOL [Concomitant]
  7. PREDNISONE [Concomitant]

REACTIONS (8)
  - CARDIO-RESPIRATORY ARREST [None]
  - CONDITION AGGRAVATED [None]
  - DISEASE PROGRESSION [None]
  - EPISTAXIS [None]
  - HYPOXIA [None]
  - PULMONARY ARTERIAL HYPERTENSION [None]
  - PULMONARY OEDEMA [None]
  - THROMBOCYTOPENIA [None]
